FAERS Safety Report 19130067 (Version 1)
Quarter: 2021Q2

REPORT INFORMATION
  Report Type: Spontaneous
  Country: US (occurrence: US)
  Receive Date: 20210413
  Receipt Date: 20210413
  Transmission Date: 20210717
  Serious: No
  Sender: FDA-Public Use
  Company Number: US-BRISTOL-MYERS SQUIBB COMPANY-BMS-2021-035813

PATIENT
  Age: 61 Year
  Sex: Female

DRUGS (1)
  1. SPRYCEL [Suspect]
     Active Substance: DASATINIB
     Indication: MALIGNANT NIPPLE NEOPLASM FEMALE
     Dosage: 100 MILLIGRAM,DAILY
     Route: 048
     Dates: start: 20170825

REACTIONS (2)
  - Diarrhoea [Unknown]
  - Intentional product use issue [Unknown]
